FAERS Safety Report 19423643 (Version 1)
Quarter: 2021Q2

REPORT INFORMATION
  Report Type: Spontaneous
  Country: US (occurrence: US)
  Receive Date: 20210616
  Receipt Date: 20210616
  Transmission Date: 20210717
  Serious: No
  Sender: FDA-Public Use
  Company Number: US-PFIZER INC-2021329495

PATIENT
  Age: 49 Year
  Sex: Male

DRUGS (2)
  1. XELJANZ XR [Suspect]
     Active Substance: TOFACITINIB CITRATE
     Indication: RHEUMATOID ARTHRITIS
     Dosage: 11 MG, DAILY
     Route: 048
     Dates: start: 20210304
  2. TOZINAMERAN. [Suspect]
     Active Substance: TOZINAMERAN
     Indication: COVID-19 IMMUNISATION
     Dosage: 2ND DOSE, SINGLE DOSE
     Dates: start: 20210318, end: 20210318

REACTIONS (2)
  - Feeling abnormal [Unknown]
  - Memory impairment [Unknown]

NARRATIVE: CASE EVENT DATE: 20210319
